FAERS Safety Report 5283125-0 (Version None)
Quarter: 2007Q2

REPORT INFORMATION
  Report Type: 
  Country: None (occurrence: None)
  Receive Date: 20070402
  Receipt Date: 20070327
  Transmission Date: 20071010
  Serious: Yes (Other)
  Sender: FDA-Public Use
  Company Number: PL-AVENTIS-200712479GDDC

PATIENT
  Age: 82 Year
  Sex: Female
  Weight: 86 kg

DRUGS (5)
  1. AMARYL [Suspect]
     Route: 048
     Dates: start: 20050112
  2. EUPHYLLIN CR [Concomitant]
     Route: 048
  3. ATENOLOL [Concomitant]
     Indication: HYPERTENSION
     Route: 048
  4. IPOREL [Concomitant]
     Route: 048
  5. SPIRONOL [Concomitant]
     Route: 048

REACTIONS (3)
  - ANGINA PECTORIS [None]
  - DYSPNOEA [None]
  - HYPERHIDROSIS [None]
